FAERS Safety Report 6470534-7 (Version None)
Quarter: 2009Q4

REPORT INFORMATION
  Report Type: 
  Country: None (occurrence: None)
  Receive Date: 20091202
  Receipt Date: 20091202
  Transmission Date: 20100525
  Serious: No
  Sender: FDA-Public Use
  Company Number: None

PATIENT
  Age: 91 Year
  Sex: Female

DRUGS (10)
  1. ACTONEL [Suspect]
     Indication: OSTEOPOROSIS
     Dosage: RISEDRONATE 35MG WEEKLY PO
     Route: 048
  2. CULTURELLE [Concomitant]
  3. SOTALOL HCL [Concomitant]
  4. LORATADINE [Concomitant]
  5. MIRTAZAPINE [Concomitant]
  6. CALCIUM/VITAMIN D [Concomitant]
  7. RIVASTIGMINE [Concomitant]
  8. FUROSEMIDE [Concomitant]
  9. LEVOTHYROXINE SODIUM [Concomitant]
  10. POTASSIUM CHLORIDE [Concomitant]

REACTIONS (1)
  - OSTEONECROSIS [None]
